FAERS Safety Report 11852770 (Version 1)
Quarter: 2015Q4

REPORT INFORMATION
  Report Type: Report from Study
  Country: JP (occurrence: JP)
  Receive Date: 20151218
  Receipt Date: 20151218
  Transmission Date: 20160305
  Serious: Yes (Death, Life-Threatening, Hospitalization, Other)
  Sender: FDA-Public Use
  Company Number: JP-INCYTE CORPORATION-2015IN006509

PATIENT
  Age: 16 Year
  Sex: Female
  Weight: 46 kg

DRUGS (50)
  1. CYLOCIDE [Concomitant]
     Active Substance: CYTARABINE
     Indication: ACUTE LYMPHOCYTIC LEUKAEMIA
     Dosage: 25 MG, UNK
     Route: 050
     Dates: start: 20150605, end: 20150605
  2. PLATELET CONCENTRATE(IRRADIATED) [Concomitant]
     Dosage: 10 IU, UNK
     Route: 065
     Dates: start: 20150421, end: 20150421
  3. RED CELLS CONCENTRATES-LEUKOCYTES REDUCED [Concomitant]
     Indication: ACUTE LYMPHOCYTIC LEUKAEMIA
     Dosage: 400 ML, UNK
     Route: 065
     Dates: start: 20150210, end: 20150210
  4. RED CELLS CONCENTRATES-LEUKOCYTES REDUCED [Concomitant]
     Dosage: 400 ML, UNK
     Route: 065
     Dates: start: 20150227, end: 20150227
  5. RED CELLS CONCENTRATES-LEUKOCYTES REDUCED [Concomitant]
     Dosage: 400 ML, UNK
     Route: 065
     Dates: start: 20150413, end: 20150413
  6. RED CELLS CONCENTRATES-LEUKOCYTES REDUCED [Concomitant]
     Dosage: 400 ML, UNK
     Route: 065
     Dates: start: 20150523, end: 20150523
  7. PLATELETS [Concomitant]
     Active Substance: HUMAN PLATELET, ALLOGENIC
     Dosage: 10 IU, UNK
     Route: 065
     Dates: start: 20150608, end: 20150608
  8. JAKAFI [Suspect]
     Active Substance: RUXOLITINIB
     Dosage: 50 MG, BID
     Route: 048
     Dates: start: 20150202
  9. ONCOVIN [Suspect]
     Active Substance: VINCRISTINE SULFATE
     Indication: ACUTE LYMPHOCYTIC LEUKAEMIA
     Dosage: 2 MG, UNK
     Route: 065
     Dates: start: 20150316, end: 20150316
  10. GRAN [Concomitant]
     Active Substance: FILGRASTIM
     Indication: ACUTE LYMPHOCYTIC LEUKAEMIA
     Dosage: 150 UG, UNK
     Route: 065
     Dates: start: 20150423, end: 20150530
  11. PLATELET CONCENTRATE(IRRADIATED) [Concomitant]
     Indication: ACUTE LYMPHOCYTIC LEUKAEMIA
     Dosage: 10 IU, UNK
     Route: 065
     Dates: start: 20150209, end: 20150209
  12. RED CELLS CONCENTRATES-LEUKOCYTES REDUCED [Concomitant]
     Dosage: 400 ML, UNK
     Route: 065
     Dates: start: 20150504, end: 20150504
  13. PLATELETS [Concomitant]
     Active Substance: HUMAN PLATELET, ALLOGENIC
     Dosage: 10 IU, UNK
     Route: 065
     Dates: start: 20150320, end: 20150320
  14. PLATELET CONCENTRATE(IRRADIATED) [Concomitant]
     Dosage: 10 IU, UNK
     Route: 065
     Dates: start: 20150425, end: 20150425
  15. PLATELET CONCENTRATE(IRRADIATED) [Concomitant]
     Dosage: 10 IU, UNK
     Route: 065
     Dates: start: 20150607, end: 20150607
  16. PLATELETS [Concomitant]
     Active Substance: HUMAN PLATELET, ALLOGENIC
     Dosage: 10 IU, UNK
     Route: 065
     Dates: start: 20150218, end: 20150218
  17. PLATELETS [Concomitant]
     Active Substance: HUMAN PLATELET, ALLOGENIC
     Dosage: 10 IU, UNK
     Route: 065
     Dates: start: 20150223, end: 20150223
  18. PLATELETS [Concomitant]
     Active Substance: HUMAN PLATELET, ALLOGENIC
     Dosage: 10 IU, UNK
     Route: 065
     Dates: start: 20150302, end: 20150302
  19. PLATELETS [Concomitant]
     Active Substance: HUMAN PLATELET, ALLOGENIC
     Dosage: 10 IU, UNK
     Route: 065
     Dates: start: 20150502, end: 20150502
  20. PLATELETS [Concomitant]
     Active Substance: HUMAN PLATELET, ALLOGENIC
     Dosage: 10 IU, UNK
     Route: 065
     Dates: start: 20150529, end: 20150529
  21. PLATELETS [Concomitant]
     Active Substance: HUMAN PLATELET, ALLOGENIC
     Dosage: 10 IU, UNK
     Route: 065
     Dates: start: 20150605, end: 20150605
  22. DECADRON [Suspect]
     Active Substance: DEXAMETHASONE
     Dosage: 26.4 MG, UNK
     Route: 048
     Dates: start: 20150420, end: 20150428
  23. RED CELLS CONCENTRATES-LEUKOCYTES REDUCED [Concomitant]
     Dosage: 400 ML, UNK
     Route: 065
     Dates: start: 20150510, end: 20150510
  24. PLATELETS [Concomitant]
     Active Substance: HUMAN PLATELET, ALLOGENIC
     Dosage: 10 IU, UNK
     Route: 065
     Dates: start: 20150507, end: 20150507
  25. PLATELETS [Concomitant]
     Active Substance: HUMAN PLATELET, ALLOGENIC
     Dosage: 10 IU, UNK
     Route: 065
     Dates: start: 20150518, end: 20150518
  26. PLATELETS [Concomitant]
     Active Substance: HUMAN PLATELET, ALLOGENIC
     Dosage: 10 IU, UNK
     Route: 065
     Dates: start: 20150526, end: 20150526
  27. DECADRON [Suspect]
     Active Substance: DEXAMETHASONE
     Indication: ACUTE LYMPHOCYTIC LEUKAEMIA
     Dosage: 8 MG, UNK
     Route: 048
     Dates: start: 20150316, end: 20150320
  28. DECADRON [Suspect]
     Active Substance: DEXAMETHASONE
     Dosage: 29.7 MG, UNK
     Route: 048
     Dates: start: 20150603, end: 20150605
  29. DIFLUCAN [Concomitant]
     Active Substance: FLUCONAZOLE
     Indication: PROPHYLAXIS
     Dosage: 100 MG, UNK
     Route: 048
     Dates: end: 20150421
  30. RED CELLS CONCENTRATES-LEUKOCYTES REDUCED [Concomitant]
     Dosage: 400 ML, UNK
     Route: 065
     Dates: start: 20150606, end: 20150606
  31. PLATELETS [Concomitant]
     Active Substance: HUMAN PLATELET, ALLOGENIC
     Dosage: 10 IU, UNK
     Route: 065
     Dates: start: 20150309, end: 20150309
  32. PLATELETS [Concomitant]
     Active Substance: HUMAN PLATELET, ALLOGENIC
     Dosage: 10 IU, UNK
     Route: 065
     Dates: start: 20150326, end: 20150326
  33. PLATELETS [Concomitant]
     Active Substance: HUMAN PLATELET, ALLOGENIC
     Dosage: 10 IU, UNK
     Route: 065
     Dates: start: 20150511, end: 20150511
  34. PLATELET CONCENTRATE(IRRADIATED) [Concomitant]
     Dosage: 10 IU, UNK
     Route: 065
     Dates: start: 20150424, end: 20150424
  35. PLATELETS [Concomitant]
     Active Substance: HUMAN PLATELET, ALLOGENIC
     Dosage: 10 IU, UNK
     Route: 065
     Dates: start: 20150316, end: 20150316
  36. PLATELETS [Concomitant]
     Active Substance: HUMAN PLATELET, ALLOGENIC
     Dosage: 10 IU, UNK
     Route: 065
     Dates: start: 20150428, end: 20150428
  37. PLATELETS [Concomitant]
     Active Substance: HUMAN PLATELET, ALLOGENIC
     Dosage: 10 IU, UNK
     Route: 065
     Dates: start: 20150514, end: 20150514
  38. BACTRAMIN [Concomitant]
     Active Substance: SULFAMETHOXAZOLE\TRIMETHOPRIM
     Indication: PROPHYLAXIS
     Dosage: 2 G, UNK
     Route: 048
  39. RED CELLS CONCENTRATES-LEUKOCYTES REDUCED [Concomitant]
     Dosage: 400 ML, UNK
     Route: 065
     Dates: start: 20150325, end: 20150325
  40. PLATELETS [Concomitant]
     Active Substance: HUMAN PLATELET, ALLOGENIC
     Indication: ACUTE LYMPHOCYTIC LEUKAEMIA
     Dosage: 10 IU, UNK
     Route: 065
     Dates: start: 20150213, end: 20150213
  41. PLATELETS [Concomitant]
     Active Substance: HUMAN PLATELET, ALLOGENIC
     Dosage: 10 IU, UNK
     Route: 065
     Dates: start: 20150402, end: 20150402
  42. PLATELETS [Concomitant]
     Active Substance: HUMAN PLATELET, ALLOGENIC
     Dosage: 10 IU, UNK
     Route: 065
     Dates: start: 20150522, end: 20150522
  43. JAKAFI [Suspect]
     Active Substance: RUXOLITINIB
     Indication: ACUTE LYMPHOCYTIC LEUKAEMIA
     Dosage: 25 MG, BID
     Route: 048
     Dates: start: 20150120, end: 20150125
  44. JAKAFI [Suspect]
     Active Substance: RUXOLITINIB
     Dosage: 40 MG, BID
     Route: 048
     Dates: start: 20150126, end: 20150201
  45. PLATELET CONCENTRATE(IRRADIATED) [Concomitant]
     Dosage: 10 IU, UNK
     Route: 065
     Dates: start: 20150423, end: 20150423
  46. RED CELLS CONCENTRATES-LEUKOCYTES REDUCED [Concomitant]
     Dosage: 400 ML, UNK
     Route: 065
     Dates: start: 20150420, end: 20150420
  47. RED CELLS CONCENTRATES-LEUKOCYTES REDUCED [Concomitant]
     Dosage: 400 ML, UNK
     Route: 065
     Dates: start: 20150602, end: 20150602
  48. PLATELETS [Concomitant]
     Active Substance: HUMAN PLATELET, ALLOGENIC
     Dosage: 10 IU, UNK
     Route: 065
     Dates: start: 20150409, end: 20150409
  49. PLATELETS [Concomitant]
     Active Substance: HUMAN PLATELET, ALLOGENIC
     Dosage: 10 IU, UNK
     Route: 065
     Dates: start: 20150415, end: 20150415
  50. PLATELETS [Concomitant]
     Active Substance: HUMAN PLATELET, ALLOGENIC
     Dosage: 10 IU, UNK
     Route: 065
     Dates: start: 20150601, end: 20150601

REACTIONS (10)
  - Acute lymphocytic leukaemia [Fatal]
  - Herpes zoster [Recovering/Resolving]
  - Pyrexia [Recovered/Resolved]
  - Seizure [Not Recovered/Not Resolved]
  - Product use issue [Unknown]
  - Bronchopulmonary aspergillosis [Fatal]
  - Bone marrow failure [Unknown]
  - Sepsis [Not Recovered/Not Resolved]
  - Blood pressure decreased [Unknown]
  - Hepatic function abnormal [Unknown]

NARRATIVE: CASE EVENT DATE: 20150209
